FAERS Safety Report 11379100 (Version 1)
Quarter: 2015Q3

REPORT INFORMATION
  Report Type: Spontaneous
  Country: US (occurrence: None)
  Receive Date: 20150813
  Receipt Date: 20150813
  Transmission Date: 20151125
  Serious: Yes (Life-Threatening)
  Sender: FDA-Public Use
  Company Number: None

PATIENT
  Age: 38 Year
  Sex: Female
  Weight: 86.18 kg

DRUGS (1)
  1. NAPROXEN. [Suspect]
     Active Substance: NAPROXEN
     Indication: MYALGIA
     Route: 048

REACTIONS (6)
  - Swollen tongue [None]
  - Urethral disorder [None]
  - Paraesthesia oral [None]
  - Genital paraesthesia [None]
  - Lip swelling [None]
  - Oral mucosal blistering [None]

NARRATIVE: CASE EVENT DATE: 20150807
